FAERS Safety Report 4366832-3 (Version None)
Quarter: 2004Q2

REPORT INFORMATION
  Report Type: 
  Country: None (occurrence: None)
  Receive Date: 20040528
  Receipt Date: 20030619
  Transmission Date: 20050107
  Serious: No
  Sender: FDA-Public Use
  Company Number: US-GLAXOSMITHKLINE-A0413353A

PATIENT
  Age: 84 Year
  Sex: Female

DRUGS (1)
  1. BACTROBAN [Suspect]
     Indication: PROPHYLAXIS
     Route: 061

REACTIONS (1)
  - CONDITION AGGRAVATED [None]
